FAERS Safety Report 19277719 (Version 2)
Quarter: 2022Q3

REPORT INFORMATION
  Report Type: Report from Study
  Country: ZA (occurrence: ZA)
  Receive Date: 20210520
  Receipt Date: 20220824
  Transmission Date: 20221027
  Serious: Yes (Hospitalization, Other)
  Sender: FDA-Public Use
  Company Number: ZA-NOVOPROD-811707

PATIENT
  Age: 71 Year
  Sex: Female

DRUGS (4)
  1. STILPANE [CODEINE PHOSPHATE;PAPAVER SOMNIFERUM TINCTURE;PARACETAMOL;PR [Concomitant]
     Indication: Pain
     Dosage: UNK
     Route: 048
  2. LEVOTHYROXINE [Concomitant]
     Active Substance: LEVOTHYROXINE
     Indication: Thyroid disorder
     Dosage: 25 AND 100 MCG
     Route: 048
  3. ATORVASTATIN [Concomitant]
     Active Substance: ATORVASTATIN
     Indication: Blood cholesterol abnormal
     Dosage: 20 MG
     Route: 048
  4. VAGIFEM [Suspect]
     Active Substance: ESTRADIOL
     Indication: Hormone replacement therapy
     Dosage: 10 ?G

REACTIONS (1)
  - Spinal operation [Unknown]
